FAERS Safety Report 7716791-8 (Version None)
Quarter: 2011Q3

REPORT INFORMATION
  Report Type: 
  Country: None (occurrence: None)
  Receive Date: 20110829
  Receipt Date: 20110825
  Transmission Date: 20111222
  Serious: Yes (Life-Threatening, Hospitalization)
  Sender: FDA-Public Use
  Company Number: JP-B.I. PHARMACEUTICALS,INC./RIDGEFIELD-2011-BP-19965NB

PATIENT
  Sex: Female

DRUGS (15)
  1. ASPARA K [Concomitant]
     Dosage: 20 MEQ
     Route: 042
  2. BORRAZA-G [Concomitant]
     Route: 054
  3. LANSOPRAZOLE [Concomitant]
     Indication: GASTROOESOPHAGEAL REFLUX DISEASE
     Dosage: 30 MG
     Route: 048
     Dates: start: 20110712, end: 20110716
  4. GRAMALIL [Concomitant]
     Indication: CEREBRAL INFARCTION
     Dosage: 50 MG
     Route: 048
     Dates: start: 20110712, end: 20110716
  5. DIGILANOGEN C [Concomitant]
     Dosage: 0.4 MG
     Route: 042
  6. LASIX [Concomitant]
     Dosage: 20 MG
     Route: 042
  7. ROCEPHIN [Concomitant]
     Dosage: 2 G
     Route: 042
  8. NERIPROCT SUPPOS [Concomitant]
     Indication: HAEMORRHOIDS
     Route: 054
     Dates: start: 20110717
  9. PRADAXA [Suspect]
     Indication: ATRIAL FIBRILLATION
     Dosage: 220 MG
     Route: 048
     Dates: start: 20110713, end: 20110716
  10. CARVEDILOL [Concomitant]
     Indication: CARDIAC FAILURE
     Dosage: 1.25 MG
     Route: 048
     Dates: start: 20110713, end: 20110716
  11. SENNOSIDE [Concomitant]
     Dosage: 24 MG
     Route: 048
     Dates: start: 20110712, end: 20110716
  12. MYOCOR [Concomitant]
     Dosage: 25 MG
     Route: 042
  13. DALTEPARIN SODIUM [Suspect]
     Dosage: 10000 U
     Route: 042
  14. TANATRIL [Concomitant]
     Dosage: 5 MG
     Route: 048
  15. ADALAT [Concomitant]
     Indication: HYPERTENSION
     Dosage: 10 MG
     Route: 048
     Dates: start: 20110712, end: 20110716

REACTIONS (2)
  - LARGE INTESTINAL HAEMORRHAGE [None]
  - MELAENA [None]
